FAERS Safety Report 25669482 (Version 2)
Quarter: 2025Q3

REPORT INFORMATION
  Report Type: Spontaneous
  Country: IN (occurrence: IN)
  Receive Date: 20250812
  Receipt Date: 20250819
  Transmission Date: 20251020
  Serious: Yes (Other)
  Sender: CIPLA
  Company Number: IN-MLMSERVICE-20250725-PI590735-00120-1

PATIENT

DRUGS (4)
  1. DICLOFENAC [Suspect]
     Active Substance: DICLOFENAC
     Indication: Headache
     Route: 030
  2. DICLOFENAC [Suspect]
     Active Substance: DICLOFENAC
     Indication: Pain
  3. DICLOFENAC [Suspect]
     Active Substance: DICLOFENAC
     Indication: Chills
  4. DICLOFENAC [Suspect]
     Active Substance: DICLOFENAC
     Indication: Pyrexia

REACTIONS (1)
  - Embolia cutis medicamentosa [Recovering/Resolving]
